FAERS Safety Report 4504537-6 (Version None)
Quarter: 2004Q4

REPORT INFORMATION
  Report Type: 
  Country: None (occurrence: None)
  Receive Date: 20041118
  Receipt Date: 20041118
  Transmission Date: 20050328
  Serious: Yes (Hospitalization)
  Sender: FDA-Public Use
  Company Number: None

PATIENT
  Age: 37 Year
  Sex: Female
  Weight: 56.6996 kg

DRUGS (7)
  1. CRESTOR [Suspect]
     Indication: HYPERCHOLESTEROLAEMIA
     Dosage: 10MG, DAILY, ORAL
     Route: 048
     Dates: start: 20041007, end: 20041012
  2. PROZAC [Concomitant]
  3. LISINOPRIL [Concomitant]
  4. CYCLOBENZAPRINE [Concomitant]
  5. ATENOLOL [Concomitant]
  6. LASIX [Concomitant]
  7. OXYCODONE HCL [Concomitant]

REACTIONS (2)
  - RENAL FAILURE ACUTE [None]
  - RHABDOMYOLYSIS [None]
